FAERS Safety Report 10243231 (Version 1)
Quarter: 2014Q2

REPORT INFORMATION
  Report Type: Spontaneous
  Country: US (occurrence: None)
  Receive Date: 20140616
  Receipt Date: 20140616
  Transmission Date: 20141212
  Serious: Yes (Hospitalization)
  Sender: FDA-Public Use
  Company Number: None

PATIENT
  Age: 37 Year
  Sex: Male
  Weight: 87.54 kg

DRUGS (23)
  1. PRECEDEX [Suspect]
     Indication: SEDATION
     Dosage: 6HOURS ?45 MINUTES?INTRAVENOUS
     Route: 042
     Dates: start: 20140421
  2. VANCOMYCIN [Concomitant]
  3. CEFEDIME [Concomitant]
  4. ROCURONIUM [Concomitant]
  5. PHENYLEPHRINE [Concomitant]
  6. SUBOXONE [Concomitant]
  7. FLUMAZENIL [Concomitant]
  8. ACETAMINOPHEN [Concomitant]
  9. AMITRIPTYLINE [Concomitant]
  10. BUTALBITAL [Concomitant]
  11. BACLOFEN [Concomitant]
  12. CITALOPRAM [Concomitant]
  13. GABAPENTIN [Concomitant]
  14. GEMFIBROZIL [Concomitant]
  15. HYDROXYZINE [Concomitant]
  16. METFORMIN [Concomitant]
  17. ODANDSETRON [Concomitant]
  18. OXYBUTYNIN ER [Concomitant]
  19. SIMVASTATIN [Concomitant]
  20. DIAZEPAM [Concomitant]
  21. OXYCODONE [Concomitant]
  22. OXYCODONE CR [Concomitant]
  23. ZOLPIDEM [Concomitant]

REACTIONS (2)
  - Unresponsive to stimuli [None]
  - Oxygen saturation abnormal [None]
